FAERS Safety Report 7368029-1 (Version None)
Quarter: 2011Q1

REPORT INFORMATION
  Report Type: 
  Country: None (occurrence: None)
  Receive Date: 20110323
  Receipt Date: 20110311
  Transmission Date: 20110831
  Serious: Yes (Other)
  Sender: FDA-Public Use
  Company Number: IE-AMGEN-IRLSP2010012487

PATIENT
  Age: 29 Year
  Sex: Female

DRUGS (4)
  1. ENBREL [Suspect]
     Indication: PRODUCT USED FOR UNKNOWN INDICATION
     Dosage: 50 MG, WEEKLY
     Route: 058
     Dates: start: 20090101
  2. METHOTREXATE [Concomitant]
     Indication: SERONEGATIVE ARTHRITIS
     Dosage: 10 MG, UNK
     Route: 048
     Dates: start: 20051101
  3. DICLOFENAC [Concomitant]
     Indication: SERONEGATIVE ARTHRITIS
     Dosage: 100 MG, UNK
     Route: 048
     Dates: start: 20070601
  4. CLONFOLIC [Concomitant]
     Indication: SERONEGATIVE ARTHRITIS
     Dosage: 5 MG, UNK
     Route: 048
     Dates: start: 20051101

REACTIONS (1)
  - SMEAR CERVIX ABNORMAL [None]
